FAERS Safety Report 16528468 (Version 1)
Quarter: 2019Q3

REPORT INFORMATION
  Report Type: Spontaneous
  Country: GB (occurrence: GB)
  Receive Date: 20190704
  Receipt Date: 20190704
  Transmission Date: 20191004
  Serious: Yes (Other)
  Sender: FDA-Public Use
  Company Number: PHHY2019GB152126

PATIENT
  Age: 87 Year
  Sex: Male
  Weight: 69 kg

DRUGS (1)
  1. CODEINE PHOSPHATE [Suspect]
     Active Substance: CODEINE PHOSPHATE
     Indication: PRODUCT USED FOR UNKNOWN INDICATION
     Dosage: 30 MG, UNK
     Route: 065

REACTIONS (1)
  - Faecaloma [Recovered/Resolved]

NARRATIVE: CASE EVENT DATE: 20040628
